FAERS Safety Report 25878704 (Version 3)
Quarter: 2025Q4

REPORT INFORMATION
  Report Type: Spontaneous
  Country: US (occurrence: US)
  Receive Date: 20251003
  Receipt Date: 20251107
  Transmission Date: 20260117
  Serious: No
  Sender: SANDOZ
  Company Number: US-SANDOZ-SDZ2025US069272

PATIENT
  Sex: Female

DRUGS (1)
  1. AMOXICILLIN [Suspect]
     Active Substance: AMOXICILLIN
     Indication: Postoperative care
     Dosage: 1 ML, BID
     Route: 048
     Dates: start: 20250918, end: 20250918

REACTIONS (7)
  - Gingival swelling [Unknown]
  - Gingival erythema [Unknown]
  - Muscular weakness [Unknown]
  - Erythema [Unknown]
  - Feeling abnormal [Unknown]
  - Rash erythematous [Unknown]
  - Gait disturbance [Unknown]

NARRATIVE: CASE EVENT DATE: 20250918
